FAERS Safety Report 5520180-4 (Version None)
Quarter: 2007Q4

REPORT INFORMATION
  Report Type: 
  Country: None (occurrence: None)
  Receive Date: 20071116
  Receipt Date: 20071113
  Transmission Date: 20080405
  Serious: Yes (Death, Hospitalization)
  Sender: FDA-Public Use
  Company Number: US-GENENTECH-251286

PATIENT
  Sex: Female
  Weight: 53.061 kg

DRUGS (5)
  1. BEVACIZUMAB [Suspect]
     Indication: METASTATIC NEOPLASM
     Dosage: 15 MG/KG, 15 CYCLES
     Route: 042
  2. ERLOTINIB [Suspect]
     Indication: METASTATIC NEOPLASM
     Dosage: 150 MG, QD, 15 CYCLES
     Route: 048
  3. ERLOTINIB [Suspect]
     Dosage: 150 MG, QD, 15 CYCLES
  4. CARBOPLATIN [Suspect]
     Indication: METASTATIC NEOPLASM
     Dosage: 175 MG/M2, 4 CYCLES
     Route: 042
     Dates: start: 20061228
  5. TAXOL [Suspect]
     Indication: METASTATIC NEOPLASM
     Dosage: 175 MG/M2, 4 CYCLES
     Route: 042
     Dates: start: 20061228

REACTIONS (1)
  - HYPOTENSION [None]
